FAERS Safety Report 4830515-3 (Version None)
Quarter: 2005Q4

REPORT INFORMATION
  Report Type: 
  Country: None (occurrence: None)
  Receive Date: 20051115
  Receipt Date: 20051110
  Transmission Date: 20060501
  Serious: Yes (Hospitalization)
  Sender: FDA-Public Use
  Company Number: TCI2005A04338

PATIENT
  Age: 53 Year
  Sex: Female

DRUGS (4)
  1. LEUPROLIDE ACETATE [Suspect]
     Indication: MENORRHAGIA
     Dosage: 1.88 MG (1.88 MG, 1 IN 28 D) SUBCUTANEOUS
     Route: 058
     Dates: start: 20020701, end: 20021201
  2. LEUPROLIDE ACETATE [Suspect]
     Indication: MENORRHAGIA
     Dosage: 1.88 MG (1.88 MG, 1 IN 28 D) SUBCUTANEOUS
     Route: 058
     Dates: start: 20030808, end: 20031224
  3. BENET TABLETS 2.5 MG (RISEDRONATE SODIUM) (TABLETS) [Concomitant]
  4. GASTER (FAMOTIDINE) TABLETS [Concomitant]

REACTIONS (6)
  - ARTHRALGIA [None]
  - DISEASE RECURRENCE [None]
  - INTERSTITIAL LUNG DISEASE [None]
  - MENORRHAGIA [None]
  - OEDEMA PERIPHERAL [None]
  - POLYMYOSITIS [None]
